FAERS Safety Report 5247780-3 (Version None)
Quarter: 2007Q1

REPORT INFORMATION
  Report Type: 
  Country: None (occurrence: None)
  Receive Date: 20070227
  Receipt Date: 20070216
  Transmission Date: 20070707
  Serious: Yes (Other)
  Sender: FDA-Public Use
  Company Number: US-ROCHE-471344

PATIENT
  Age: 49 Year
  Sex: Male
  Weight: 78.9 kg

DRUGS (5)
  1. PEGASYS [Suspect]
     Indication: HEPATITIS C
     Route: 058
     Dates: start: 20060602, end: 20061106
  2. RIBAVIRIN [Suspect]
     Indication: HEPATITIS C
     Route: 048
     Dates: start: 20060602, end: 20061106
  3. LISINOPRIL [Concomitant]
  4. NIFEDIPINE [Concomitant]
  5. ATENOLOL [Concomitant]

REACTIONS (2)
  - BLOOD CREATINE PHOSPHOKINASE INCREASED [None]
  - POLYMYOSITIS [None]
